FAERS Safety Report 7181498-5 (Version None)
Quarter: 2010Q4

REPORT INFORMATION
  Report Type: 
  Country: None (occurrence: None)
  Receive Date: 20101221
  Receipt Date: 20100426
  Transmission Date: 20110411
  Serious: Yes (Hospitalization)
  Sender: FDA-Public Use
  Company Number: US-AMGEN-KDL408633

PATIENT

DRUGS (1)
  1. ENBREL [Suspect]
     Indication: RHEUMATOID ARTHRITIS
     Dosage: 50 MG, QWK
     Route: 058
     Dates: start: 20070325

REACTIONS (5)
  - CLOSTRIDIAL INFECTION [None]
  - DYSPNOEA [None]
  - LUNG NEOPLASM MALIGNANT [None]
  - NASOPHARYNGITIS [None]
  - RASH PAPULAR [None]
